FAERS Safety Report 8776004 (Version 1)
Quarter: 2012Q4

REPORT INFORMATION
  Report Type: 
  Country: US (occurrence: US)
  Receive Date: 20120910
  Receipt Date: 20120910
  Transmission Date: 20130627
  Serious: Yes (Hospitalization)
  Sender: FDA-Public Use
  Company Number: US-NOVEN-12US005223

PATIENT
  Age: 55 Year
  Sex: Female

DRUGS (4)
  1. LITHOBID [Suspect]
     Indication: BIPOLAR DISORDER
     Dosage: 300 mg, q am and pm; 150 mg daytime
  2. SEROQUEL [Concomitant]
     Indication: PRODUCT USED FOR UNKNOWN INDICATION
     Dosage: 400 mg, qd
     Route: 048
  3. TEMAZEPAM [Concomitant]
     Indication: PRODUCT USED FOR UNKNOWN INDICATION
     Dosage: 30 mg, qd
     Route: 048
  4. TRAZODONE [Concomitant]

REACTIONS (7)
  - Left ventricular hypertrophy [Not Recovered/Not Resolved]
  - Bipolar disorder [Recovered/Resolved]
  - Toxicity to various agents [Recovered/Resolved]
  - Accidental overdose [Recovered/Resolved]
  - Chest pain [Recovered/Resolved]
  - Blood pressure increased [Recovered/Resolved]
  - Palpitations [Recovered/Resolved]
